FAERS Safety Report 7350067-6 (Version None)
Quarter: 2011Q1

REPORT INFORMATION
  Report Type: 
  Country: None (occurrence: None)
  Receive Date: 20110314
  Receipt Date: 20110303
  Transmission Date: 20110831
  Serious: Yes (Other)
  Sender: FDA-Public Use
  Company Number: PH-ELI_LILLY_AND_COMPANY-PH201103002124

PATIENT
  Age: 8 Year

DRUGS (1)
  1. STRATTERA [Suspect]
     Dosage: 40 MG, DAILY (1/D)
     Route: 048

REACTIONS (2)
  - HEART RATE IRREGULAR [None]
  - ATRIOVENTRICULAR BLOCK FIRST DEGREE [None]
